FAERS Safety Report 9343152 (Version 2)
Quarter: 2013Q4

REPORT INFORMATION
  Report Type: Spontaneous
  Country: BR (occurrence: BR)
  Receive Date: 20130611
  Receipt Date: 20131016
  Transmission Date: 20140711
  Serious: Yes (Hospitalization, Other)
  Sender: FDA-Public Use
  Company Number: BR-ASTRAZENECA-2013SE40203

PATIENT
  Age: 60 Year
  Sex: Female
  Weight: 56 kg

DRUGS (18)
  1. ATENOLOL [Suspect]
     Indication: ARRHYTHMIA
     Route: 048
     Dates: end: 201306
  2. ATENOLOL [Suspect]
     Indication: AMERICAN TRYPANOSOMIASIS
     Route: 048
     Dates: end: 201306
  3. SELOZOK [Suspect]
     Indication: HYPERTENSION
     Route: 048
     Dates: start: 201306, end: 201308
  4. SELOZOK [Suspect]
     Indication: ARRHYTHMIA
     Route: 048
     Dates: start: 201306, end: 201308
  5. SELOZOK [Suspect]
     Indication: AMERICAN TRYPANOSOMIASIS
     Route: 048
     Dates: start: 201306, end: 201308
  6. SELOZOK [Suspect]
     Indication: HYPERTENSION
     Route: 048
  7. SELOZOK [Suspect]
     Indication: ARRHYTHMIA
     Route: 048
  8. SELOZOK [Suspect]
     Indication: AMERICAN TRYPANOSOMIASIS
     Route: 048
  9. OMEPRAZOLE [Suspect]
     Indication: GASTROOESOPHAGEAL REFLUX DISEASE
     Route: 048
     Dates: end: 201308
  10. LOPIGREL [Suspect]
     Indication: ANTICOAGULANT THERAPY
     Dates: end: 201308
  11. OLANZAPINE [Concomitant]
     Indication: DEPRESSION
  12. SERTRALINE [Concomitant]
     Indication: DEPRESSION
  13. DIAZEPAM [Concomitant]
     Indication: DEPRESSION
  14. BENICAR [Concomitant]
     Indication: HYPERTENSION
     Dates: start: 201308, end: 201308
  15. BENICAR [Concomitant]
     Indication: ARRHYTHMIA
     Dates: start: 201308, end: 201308
  16. BENICAR [Concomitant]
     Indication: AMERICAN TRYPANOSOMIASIS
     Dates: start: 201308, end: 201308
  17. COVERSYL [Concomitant]
     Dates: start: 201306
  18. ZIPROL [Concomitant]
     Indication: GASTROOESOPHAGEAL REFLUX DISEASE
     Dates: start: 201308

REACTIONS (6)
  - Hypertension [Recovered/Resolved]
  - Intestinal obstruction [Recovered/Resolved]
  - Haematoma [Recovered/Resolved]
  - Hypotension [Recovered/Resolved]
  - Off label use [Unknown]
  - Off label use [Recovered/Resolved]
